FAERS Safety Report 11373837 (Version 1)
Quarter: 2015Q3

REPORT INFORMATION
  Report Type: Spontaneous
  Country: US (occurrence: None)
  Receive Date: 20150811
  Receipt Date: 20150811
  Transmission Date: 20151125
  Serious: Yes (Hospitalization)
  Sender: FDA-Public Use
  Company Number: INS201507-000323

PATIENT
  Age: 47 Year
  Sex: Male
  Weight: 122.4 kg

DRUGS (16)
  1. TERAZOSIN [Concomitant]
     Active Substance: TERAZOSIN\TERAZOSIN HYDROCHLORIDE
  2. AVODART [Concomitant]
     Active Substance: DUTASTERIDE
  3. TEMAZEPAM. [Concomitant]
     Active Substance: TEMAZEPAM
  4. TOPIRAMATE. [Concomitant]
     Active Substance: TOPIRAMATE
  5. PENTASA (MESALAMINE) [Concomitant]
  6. SUBSYS [Suspect]
     Active Substance: FENTANYL
     Indication: BREAKTHROUGH PAIN
     Dosage: (400 MCG,3 TIMES A DAY/EVERY 8 HOURS),SUBLINGUAL
     Route: 060
     Dates: start: 201502
  7. OMEPRAZOLE. [Concomitant]
     Active Substance: OMEPRAZOLE
  8. ALPRAZOLAM. [Concomitant]
     Active Substance: ALPRAZOLAM
  9. LANTUS SOLOSTAR [Concomitant]
     Active Substance: INSULIN GLARGINE
  10. HUMALOG (INSULION LISPRO INJECTION) [Concomitant]
  11. LOSARTAN. [Concomitant]
     Active Substance: LOSARTAN
  12. METHADONE [Concomitant]
     Active Substance: METHADONE HYDROCHLORIDE
  13. MIRALAX (POLYETHYLENE GLYCOL 3350) [Concomitant]
  14. PROMETHAZINE [Concomitant]
     Active Substance: PROMETHAZINE\PROMETHAZINE HYDROCHLORIDE
  15. DICYCLOMINE [Concomitant]
     Active Substance: DICYCLOMINE HYDROCHLORIDE
  16. FLONACE (FLUTICASONE) [Concomitant]

REACTIONS (11)
  - Chapped lips [None]
  - Off label use [None]
  - Intestinal haemorrhage [None]
  - Gastrointestinal inflammation [None]
  - Aphonia [None]
  - Product quality issue [None]
  - Crohn^s disease [None]
  - Cellulitis [None]
  - Device malfunction [None]
  - Dry mouth [None]
  - Stomatitis [None]

NARRATIVE: CASE EVENT DATE: 201505
